FAERS Safety Report 4356219-1 (Version None)
Quarter: 2004Q2

REPORT INFORMATION
  Report Type: 
  Country: None (occurrence: None)
  Receive Date: 20040511
  Receipt Date: 20040505
  Transmission Date: 20050107
  Serious: Yes (Other)
  Sender: FDA-Public Use
  Company Number: ES-MERCK-0405ESP00013

PATIENT
  Sex: Male

DRUGS (3)
  1. ATORVASTATIN CALCIUM [Concomitant]
     Indication: HYPERCHOLESTEROLAEMIA
     Route: 048
     Dates: end: 20040501
  2. ZETIA [Suspect]
     Indication: HYPERCHOLESTEROLAEMIA
     Route: 048
     Dates: start: 20040401, end: 20040401
  3. ZETIA [Suspect]
     Route: 048
     Dates: start: 20040401, end: 20040501

REACTIONS (3)
  - DIARRHOEA [None]
  - GASTROINTESTINAL DISORDER [None]
  - PANCREATITIS [None]
